FAERS Safety Report 4969353-X (Version None)
Quarter: 2006Q2

REPORT INFORMATION
  Report Type: 
  Country: None (occurrence: None)
  Receive Date: 20060405
  Receipt Date: 20060327
  Transmission Date: 20061013
  Serious: Yes (Death, Other)
  Sender: FDA-Public Use
  Company Number: 163-20785-06010360

PATIENT
  Age: 82 Year
  Sex: Male

DRUGS (1)
  1. THALOMID [Suspect]
     Indication: MULTIPLE MYELOMA
     Dosage: 100 MG, DAILY,ORAL
     Route: 048
     Dates: start: 20040817, end: 20051206

REACTIONS (4)
  - DISEASE PROGRESSION [None]
  - KNEE ARTHROPLASTY [None]
  - MULTIPLE MYELOMA [None]
  - RENAL FAILURE [None]
